FAERS Safety Report 12902350 (Version 1)
Quarter: 2016Q4

REPORT INFORMATION
  Report Type: Spontaneous
  Country: FR (occurrence: FR)
  Receive Date: 20161102
  Receipt Date: 20161102
  Transmission Date: 20170207
  Serious: Yes (Hospitalization)
  Sender: FDA-Public Use
  Company Number: FR-ACCORD-045194

PATIENT
  Age: 38 Year
  Sex: Female

DRUGS (8)
  1. INEXIUM [Concomitant]
     Active Substance: ESOMEPRAZOLE
     Dates: start: 20160905
  2. ONDANSETRON [Concomitant]
     Active Substance: ONDANSETRON
     Indication: PREMEDICATION
  3. FLUOROURACIL ACCORD [Suspect]
     Active Substance: FLUOROURACIL
     Indication: COLON CANCER
     Dosage: ONCE PER COURSE OF TREATMENT?FIRST COURSE?SECOND COURSE STARTED ON 06-SEP-2016
     Route: 042
     Dates: start: 20160819, end: 20160906
  4. ERBITUX [Suspect]
     Active Substance: CETUXIMAB
     Indication: COLON CANCER
     Dosage: ONCE PER COURSE OF TREATMENT?FIRST COURSE?SECOND COURSE STARTED ON 06-SEP-2016
     Route: 042
     Dates: start: 20160819, end: 20160906
  5. DOXYCYCLINE. [Concomitant]
     Active Substance: DOXYCYCLINE
     Indication: PREMEDICATION
  6. FOLINIC ACID [Concomitant]
     Active Substance: LEUCOVORIN
     Indication: COLON CANCER
     Dosage: FIRST COURSE?SECOND COURSE STARTED ON 06-SEP-2016
     Route: 042
     Dates: start: 20160819, end: 20160906
  7. POLARAMINE [Concomitant]
     Active Substance: DEXCHLORPHENIRAMINE MALEATE
     Indication: PREMEDICATION
  8. IRINOTECAN FRESENIUS [Suspect]
     Active Substance: IRINOTECAN
     Indication: COLON CANCER
     Dosage: ONCE PER COURSE OF TREATMENT?FIRST COURSE?SECOND COURSE STARTED ON 06-SEP-2016
     Route: 042
     Dates: start: 20160819, end: 20160906

REACTIONS (2)
  - Intestinal obstruction [Recovered/Resolved]
  - Pancreatitis acute [Unknown]

NARRATIVE: CASE EVENT DATE: 20160909
